FAERS Safety Report 18206711 (Version 1)
Quarter: 2020Q3

REPORT INFORMATION
  Report Type: Spontaneous
  Country: US (occurrence: US)
  Receive Date: 20200828
  Receipt Date: 20200828
  Transmission Date: 20201103
  Serious: Yes (Hospitalization)
  Sender: FDA-Public Use
  Company Number: US-EMCURE PHARMACEUTICALS LTD-2020-EPL-001168

PATIENT
  Age: 49 Year
  Sex: Male

DRUGS (3)
  1. ISONIAZID. [Suspect]
     Active Substance: ISONIAZID
     Indication: LATENT TUBERCULOSIS
     Dosage: 900 MILLIGRAM WEEKLY
  2. RIFAMPIN. [Suspect]
     Active Substance: RIFAMPIN
     Dosage: 300 MILLIGRAM WEEKLY, RE?ADMINISTERED AFTER A DRUG?FREE INTERVAL OF TWO WEEKS
  3. RIFAMPIN. [Suspect]
     Active Substance: RIFAMPIN
     Indication: LATENT TUBERCULOSIS
     Dosage: 300 MILLIGRAM WEEKLY

REACTIONS (3)
  - Product dose omission issue [Unknown]
  - Acute kidney injury [Recovered/Resolved]
  - Intravascular haemolysis [Recovered/Resolved]
